FAERS Safety Report 15579444 (Version 1)
Quarter: 2018Q4

REPORT INFORMATION
  Report Type: Spontaneous
  Country: FR (occurrence: FR)
  Receive Date: 20181102
  Receipt Date: 20181102
  Transmission Date: 20190205
  Serious: Yes (Other)
  Sender: FDA-Public Use
  Company Number: FR-REGENERON PHARMACEUTICALS, INC.-2018-36796

PATIENT

DRUGS (3)
  1. EYLEA [Suspect]
     Active Substance: AFLIBERCEPT
     Dosage: UNK, UNK, LAST INJECTION PRIOR TO EVENT
     Route: 031
     Dates: start: 20180823, end: 20180823
  2. EYLEA [Suspect]
     Active Substance: AFLIBERCEPT
     Indication: PRODUCT USED FOR UNKNOWN INDICATION
     Dosage: UNK, TOTAL OF 3 DOSES PRIOR TO EVENT -  WITHIN 6 MONTHS
     Route: 031
  3. BETADINE [Concomitant]
     Active Substance: POVIDONE-IODINE
     Indication: PRODUCT USED FOR UNKNOWN INDICATION
     Route: 047

REACTIONS (3)
  - Endophthalmitis [Not Recovered/Not Resolved]
  - Blindness [Recovering/Resolving]
  - Hypotony of eye [Recovered/Resolved]

NARRATIVE: CASE EVENT DATE: 20180829
